FAERS Safety Report 23228058 (Version 2)
Quarter: 2024Q3

REPORT INFORMATION
  Report Type: Spontaneous
  Country: FR (occurrence: FR)
  Receive Date: 20231125
  Receipt Date: 20240801
  Transmission Date: 20241016
  Serious: Yes (Hospitalization, Disabling, Other)
  Sender: TEVA
  Company Number: FR-TEVA-2023-FR-2949168

PATIENT
  Age: 51 Year
  Sex: Female

DRUGS (9)
  1. COTRIMOXAZOLE [Suspect]
     Active Substance: SULFAMETHOXAZOLE\TRIMETHOPRIM
     Indication: Salpingitis
     Dosage: 800/160 MG
     Route: 065
     Dates: start: 20180624
  2. BACTRIM [Concomitant]
     Active Substance: SULFAMETHOXAZOLE\TRIMETHOPRIM
     Indication: Escherichia infection
     Dosage: 1 TABLET IN THE MORNING AND IN THE EVENING DURING 14 DAYS
     Dates: start: 20180622
  3. ACETAMINOPHEN [Concomitant]
     Active Substance: ACETAMINOPHEN
     Indication: Pain
     Dosage: TIME INTERVAL: 0.33333333 DAYS
     Dates: start: 20180622
  4. ESOMEPRAZOLE [Suspect]
     Active Substance: ESOMEPRAZOLE
     Dosage: BIOGARAN
     Route: 065
     Dates: start: 20180624
  5. ACETAMINOPHEN [Suspect]
     Active Substance: ACETAMINOPHEN
     Dosage: BIOGARAN
     Route: 065
     Dates: start: 20180624
  6. ESCITALOPRAM OXALATE [Suspect]
     Active Substance: ESCITALOPRAM OXALATE
     Dosage: 5MG PER DAY DURING ONE WEEK THEN 10MG PER DA
     Route: 065
     Dates: start: 20180622
  7. CLARITHROMYCIN [Concomitant]
     Active Substance: CLARITHROMYCIN
     Dates: start: 20191008
  8. EBASTINE [Concomitant]
     Active Substance: EBASTINE
     Dates: start: 20181008
  9. AMIKACIN [Concomitant]
     Active Substance: AMIKACIN
     Dates: start: 2019

REACTIONS (34)
  - Toxic epidermal necrolysis [Unknown]
  - Disturbance in attention [Unknown]
  - Balance disorder [Unknown]
  - General physical health deterioration [Unknown]
  - Hypoxia [Unknown]
  - Depression [Unknown]
  - Mechanical ventilation [Unknown]
  - Pyrexia [Unknown]
  - Anxiety [Recovering/Resolving]
  - Rash [Unknown]
  - Mouth ulceration [Unknown]
  - Oxygen saturation abnormal [Unknown]
  - Respiratory distress [Unknown]
  - Post-traumatic stress disorder [Unknown]
  - Eye pruritus [Unknown]
  - Skin disorder [Unknown]
  - Cognitive disorder [Unknown]
  - Dysphonia [Unknown]
  - Lip swelling [Unknown]
  - Trichiasis [Unknown]
  - Diffuse panbronchiolitis [Unknown]
  - Hirsutism [Unknown]
  - Urinary incontinence [Unknown]
  - Anonychia [Unknown]
  - Nail atrophy [Unknown]
  - Oral mucosal erythema [Unknown]
  - Sinusitis [Unknown]
  - Skin ulcer [Unknown]
  - Atrophic glossitis [Unknown]
  - Acne [Unknown]
  - Odynophagia [Unknown]
  - Drug eruption [Unknown]
  - Bacterial disease carrier [Unknown]
  - Onychomadesis [Unknown]

NARRATIVE: CASE EVENT DATE: 20180101
